FAERS Safety Report 13613205 (Version 3)
Quarter: 2018Q3

REPORT INFORMATION
  Report Type: Report from Study
  Country: DE (occurrence: DE)
  Receive Date: 20170605
  Receipt Date: 20180718
  Transmission Date: 20181010
  Serious: Yes (Hospitalization)
  Sender: FDA-Public Use
  Company Number: DE-SEATTLE GENETICS-2017SGN01317

PATIENT

DRUGS (6)
  1. ETOPOSIDE. [Suspect]
     Active Substance: ETOPOSIDE
     Indication: HODGKIN^S DISEASE
     Dosage: 150 MG/M2, UNK
     Route: 065
     Dates: start: 20170516, end: 20170518
  2. DOXORUBICIN [Suspect]
     Active Substance: DOXORUBICIN
     Indication: HODGKIN^S DISEASE
     Dosage: 40 MG/M2, UNK
     Route: 065
     Dates: start: 20170516, end: 20170516
  3. BRENTUXIMAB VEDOTIN?MPI [Suspect]
     Active Substance: BRENTUXIMAB VEDOTIN
     Indication: HODGKIN^S DISEASE
     Dosage: 1.8 MG/KG, UNK
     Route: 065
     Dates: start: 20170515, end: 20170515
  4. DACARBAZINE. [Suspect]
     Active Substance: DACARBAZINE
     Indication: HODGKIN^S DISEASE
     Dosage: 250 MG/M2, UNK
     Route: 065
     Dates: start: 20170517, end: 20170518
  5. CYCLOPHOSPHAMIDE. [Suspect]
     Active Substance: CYCLOPHOSPHAMIDE
     Indication: HODGKIN^S DISEASE
     Dosage: 1250 MG/M2, UNK
     Route: 065
     Dates: start: 20170516, end: 20170516
  6. DEXAMETHASONE. [Suspect]
     Active Substance: DEXAMETHASONE
     Indication: HODGKIN^S DISEASE
     Dosage: 40 MG/M2, UNK
     Route: 065
     Dates: start: 20170516, end: 20170519

REACTIONS (1)
  - Febrile infection [Recovered/Resolved]

NARRATIVE: CASE EVENT DATE: 20170522
